FAERS Safety Report 23816796 (Version 1)
Quarter: 2024Q2

REPORT INFORMATION
  Report Type: Spontaneous
  Country: ES (occurrence: ES)
  Receive Date: 20240504
  Receipt Date: 20240504
  Transmission Date: 20240716
  Serious: Yes (Disabling)
  Sender: FDA-Public Use
  Company Number: ES-002147023-NVSC2024ES062097

PATIENT
  Age: 53 Year
  Sex: Female

DRUGS (2)
  1. LUTATHERA [Suspect]
     Active Substance: LUTETIUM OXODOTREOTIDE LU-177
     Indication: Product used for unknown indication
     Dosage: UNK (FIRST DOSE)
     Route: 042
     Dates: start: 202312
  2. LUTATHERA [Suspect]
     Active Substance: LUTETIUM OXODOTREOTIDE LU-177
     Dosage: UNK (SECOND DOSE)
     Route: 065
     Dates: end: 202402

REACTIONS (4)
  - General physical health deterioration [Unknown]
  - Diarrhoea [Unknown]
  - Leukopenia [Unknown]
  - Ill-defined disorder [Unknown]
